FAERS Safety Report 7406939-7 (Version None)
Quarter: 2011Q2

REPORT INFORMATION
  Report Type: 
  Country: None (occurrence: None)
  Receive Date: 20110411
  Receipt Date: 20110405
  Transmission Date: 20111010
  Serious: No
  Sender: FDA-Public Use
  Company Number: US-PFIZER INC-2011040762

PATIENT
  Sex: Female

DRUGS (2)
  1. FESOTERODINE [Suspect]
     Dosage: UNK
  2. OXYBUTYNIN CHLORIDE [Suspect]
     Dosage: 10 MG, UNK

REACTIONS (2)
  - ABDOMINAL PAIN UPPER [None]
  - MALAISE [None]
